FAERS Safety Report 19032627 (Version 3)
Quarter: 2021Q2

REPORT INFORMATION
  Report Type: Spontaneous
  Country: JP (occurrence: JP)
  Receive Date: 20210319
  Receipt Date: 20210624
  Transmission Date: 20210717
  Serious: Yes (Death, Other)
  Sender: FDA-Public Use
  Company Number: JP-JNJFOC-20210328645

PATIENT
  Age: 63 Year
  Sex: Female
  Weight: 50 kg

DRUGS (1)
  1. OPSUMIT [Suspect]
     Active Substance: MACITENTAN
     Indication: PULMONARY HYPERTENSION
     Route: 048

REACTIONS (3)
  - Interstitial lung disease [Fatal]
  - Multiple organ dysfunction syndrome [Fatal]
  - Pulmonary hypertension [Unknown]

NARRATIVE: CASE EVENT DATE: 20200302
